FAERS Safety Report 21801374 (Version 1)
Quarter: 2022Q4

REPORT INFORMATION
  Report Type: Spontaneous
  Country: US (occurrence: None)
  Receive Date: 20221230
  Receipt Date: 20221230
  Transmission Date: 20230112
  Serious: No
  Sender: FDA-Public Use
  Company Number: None

PATIENT
  Age: 65 Year
  Sex: Male
  Weight: 83.25 kg

DRUGS (13)
  1. PAXLOVID [Suspect]
     Active Substance: NIRMATRELVIR\RITONAVIR
     Indication: COVID-19
     Dosage: OTHER QUANTITY : 3 TABLET(S);?FREQUENCY : TWICE A DAY;?
     Route: 048
     Dates: start: 20221228, end: 20221230
  2. VELCADE [Suspect]
     Active Substance: BORTEZOMIB
  3. ACYCLOVIR [Concomitant]
     Active Substance: ACYCLOVIR
  4. PAXLOVID [Concomitant]
     Active Substance: NIRMATRELVIR\RITONAVIR
  5. B-6 [Concomitant]
  6. VITAMINS [Concomitant]
     Active Substance: VITAMINS
  7. VITAMIN E [Concomitant]
     Active Substance: .ALPHA.-TOCOPHEROL
  8. Glucosamine-chondrotin [Concomitant]
  9. IRON [Concomitant]
     Active Substance: IRON
  10. Low-dose aspir [Concomitant]
  11. Nyquil and daytime cold [Concomitant]
  12. DARZALEX FASPRO [Suspect]
     Active Substance: DARATUMUMAB\HYALURONIDASE-FIHJ
  13. REVLIMID [Suspect]
     Active Substance: LENALIDOMIDE

REACTIONS (2)
  - Rash [None]
  - Injection site rash [None]

NARRATIVE: CASE EVENT DATE: 20221228
